FAERS Safety Report 12237601 (Version 2)
Quarter: 2017Q2

REPORT INFORMATION
  Report Type: Report from Study
  Country: US (occurrence: US)
  Receive Date: 20160405
  Receipt Date: 20170517
  Transmission Date: 20170830
  Serious: Yes (Other)
  Sender: FDA-Public Use
  Company Number: US-ROCHE-1736574

PATIENT
  Age: 63 Year
  Sex: Male

DRUGS (5)
  1. DASABUVIR [Suspect]
     Active Substance: DASABUVIR
     Indication: HEPATITIS C
     Route: 048
  2. RITONAVIR. [Suspect]
     Active Substance: RITONAVIR
     Indication: HEPATITIS C
     Route: 048
  3. ABT-450 (HCV PROTEASE INHIBITOR) [Suspect]
     Active Substance: PARITAPREVIR
     Indication: HEPATITIS C
     Route: 048
  4. OMBITASVIR [Suspect]
     Active Substance: OMBITASVIR
     Indication: HEPATITIS C
     Route: 048
  5. RIBAVIRIN. [Suspect]
     Active Substance: RIBAVIRIN
     Indication: HEPATITIS C
     Dosage: 1000 MG OR 1200 MG DAILY, ACCORDING TO BODY WEIGHT, IN TWO DOSES
     Route: 048

REACTIONS (1)
  - Atrial fibrillation [Unknown]
